FAERS Safety Report 5426059-0 (Version None)
Quarter: 2007Q3

REPORT INFORMATION
  Report Type: 
  Country: None (occurrence: None)
  Receive Date: 20070824
  Receipt Date: 20070824
  Transmission Date: 20080115
  Serious: No
  Sender: FDA-Public Use
  Company Number: None

PATIENT
  Sex: Male
  Weight: 81.2 kg

DRUGS (2)
  1. CYTARABINE [Suspect]
     Dosage: 700 MG
  2. DAUNORUBICIN HCL [Suspect]
     Dosage: 135 MG

REACTIONS (5)
  - ALANINE AMINOTRANSFERASE INCREASED [None]
  - ASPARTATE AMINOTRANSFERASE INCREASED [None]
  - LIVER FUNCTION TEST ABNORMAL [None]
  - STEM CELL TRANSPLANT [None]
  - TRANSAMINASES INCREASED [None]
